FAERS Safety Report 17148671 (Version 4)
Quarter: 2020Q2

REPORT INFORMATION
  Report Type: Report from Study
  Country: None (occurrence: US)
  Receive Date: 20191213
  Receipt Date: 20200605
  Transmission Date: 20200713
  Serious: Yes (Hospitalization, Other)
  Sender: FDA-Public Use
  Company Number: US-ABBVIE-18K-163-3107129-00

PATIENT
  Age: 73 Year
  Sex: Female

DRUGS (22)
  1. IMBRUVICA [Suspect]
     Active Substance: IBRUTINIB
     Indication: CHRONIC LYMPHOCYTIC LEUKAEMIA
     Route: 048
     Dates: start: 20160327, end: 20180425
  2. PANTOPRAZOLE [Concomitant]
     Active Substance: PANTOPRAZOLE
     Indication: PRODUCT USED FOR UNKNOWN INDICATION
  3. TERBINAFINE. [Concomitant]
     Active Substance: TERBINAFINE
     Indication: PRODUCT USED FOR UNKNOWN INDICATION
  4. BYSTOLIC [Concomitant]
     Active Substance: NEBIVOLOL HYDROCHLORIDE
     Indication: PRODUCT USED FOR UNKNOWN INDICATION
  5. RESTORIL [Concomitant]
     Active Substance: TEMAZEPAM
     Indication: PRODUCT USED FOR UNKNOWN INDICATION
  6. IMBRUVICA [Suspect]
     Active Substance: IBRUTINIB
     Route: 048
     Dates: start: 20180401
  7. PREMARIN [Concomitant]
     Active Substance: ESTROGENS, CONJUGATED
     Indication: PRODUCT USED FOR UNKNOWN INDICATION
     Route: 067
  8. IMBRUVICA [Suspect]
     Active Substance: IBRUTINIB
     Route: 048
  9. IMBRUVICA [Suspect]
     Active Substance: IBRUTINIB
     Route: 048
  10. BIOTIN [Concomitant]
     Active Substance: BIOTIN
     Indication: PRODUCT USED FOR UNKNOWN INDICATION
  11. IMBRUVICA [Suspect]
     Active Substance: IBRUTINIB
     Route: 048
     Dates: start: 20180420
  12. ACYCLOVIR                          /00587301/ [Concomitant]
     Active Substance: ACYCLOVIR
     Indication: PRODUCT USED FOR UNKNOWN INDICATION
  13. LAMISIL [Concomitant]
     Active Substance: TERBINAFINE HYDROCHLORIDE
     Indication: PRODUCT USED FOR UNKNOWN INDICATION
  14. CALCIUM [Concomitant]
     Active Substance: CALCIUM
     Indication: PRODUCT USED FOR UNKNOWN INDICATION
  15. IMODIUM [Concomitant]
     Active Substance: LOPERAMIDE HYDROCHLORIDE
     Indication: PRODUCT USED FOR UNKNOWN INDICATION
  16. IMBRUVICA [Suspect]
     Active Substance: IBRUTINIB
     Route: 048
     Dates: start: 2018, end: 20180419
  17. IMBRUVICA [Suspect]
     Active Substance: IBRUTINIB
     Indication: CHRONIC LYMPHOCYTIC LEUKAEMIA
     Route: 048
     Dates: start: 20180426
  18. IMBRUVICA [Suspect]
     Active Substance: IBRUTINIB
     Route: 048
     Dates: start: 20180618
  19. DIAZEPAM. [Concomitant]
     Active Substance: DIAZEPAM
     Indication: PRODUCT USED FOR UNKNOWN INDICATION
  20. WELLBUTRIN [Concomitant]
     Active Substance: BUPROPION HYDROCHLORIDE
     Indication: PRODUCT USED FOR UNKNOWN INDICATION
  21. GABAPENTIN. [Suspect]
     Active Substance: GABAPENTIN
     Indication: PAIN IN JAW
     Route: 065
  22. OMEPRAZOE [Concomitant]
     Indication: PRODUCT USED FOR UNKNOWN INDICATION

REACTIONS (46)
  - Nasal operation [Unknown]
  - Acne [Unknown]
  - Pain in jaw [Unknown]
  - Dysphagia [Recovering/Resolving]
  - Ageusia [Unknown]
  - Oropharyngeal pain [Unknown]
  - Bone pain [Unknown]
  - Dermatitis contact [Unknown]
  - Trigeminal neuralgia [Recovering/Resolving]
  - Bone disorder [Recovering/Resolving]
  - Nasal discharge discolouration [Recovered/Resolved]
  - Hypersomnia [Unknown]
  - Dysgeusia [Unknown]
  - Oral herpes [Recovered/Resolved]
  - Dizziness [Recovering/Resolving]
  - Nasopharyngitis [Recovered/Resolved]
  - Epistaxis [Recovered/Resolved]
  - Asthenia [Unknown]
  - White blood cell count increased [Unknown]
  - Pain in extremity [Unknown]
  - Onychomadesis [Unknown]
  - Myalgia [Unknown]
  - Mastication disorder [Recovering/Resolving]
  - Sinus disorder [Recovered/Resolved]
  - Ear infection [Recovered/Resolved]
  - Pharyngeal haemorrhage [Unknown]
  - Hospitalisation [Unknown]
  - Aphasia [Recovering/Resolving]
  - Headache [Unknown]
  - Pharyngitis [Unknown]
  - Facial pain [Unknown]
  - Immunodeficiency [Unknown]
  - Adverse drug reaction [Recovering/Resolving]
  - Lymphocyte count increased [Unknown]
  - Peripheral swelling [Recovered/Resolved]
  - Depression [Unknown]
  - Gout [Recovered/Resolved]
  - Nasal herpes [Recovered/Resolved]
  - Malaise [Unknown]
  - Blood uric acid increased [Recovered/Resolved]
  - Arteriosclerosis [Unknown]
  - Fatigue [Recovering/Resolving]
  - Infection [Recovering/Resolving]
  - Vaginal infection [Unknown]
  - Onychomycosis [Unknown]
  - Palpitations [Unknown]

NARRATIVE: CASE EVENT DATE: 201805
